FAERS Safety Report 15563424 (Version 3)
Quarter: 2019Q1

REPORT INFORMATION
  Report Type: Report from Study
  Country: CA (occurrence: CA)
  Receive Date: 20181029
  Receipt Date: 20190121
  Transmission Date: 20190417
  Serious: Yes (Hospitalization, Other)
  Sender: FDA-Public Use
  Company Number: CA-MYLANLABS-2018M1079885

PATIENT
  Age: 4 Year
  Sex: Male

DRUGS (2)
  1. EPIPEN [Suspect]
     Active Substance: EPINEPHRINE
     Indication: DUST ALLERGY
  2. EPIPEN [Suspect]
     Active Substance: EPINEPHRINE
     Indication: MILK ALLERGY
     Dosage: 0.15 MILLIGRAM
     Route: 065
     Dates: start: 20180326, end: 20180326

REACTIONS (5)
  - Injury associated with device [Recovered/Resolved]
  - Injection site bruising [Recovered/Resolved]
  - Accidental exposure to product by child [Recovered/Resolved]
  - Injection site scar [Recovered/Resolved]
  - Needle issue [Recovered/Resolved]

NARRATIVE: CASE EVENT DATE: 20181009
